FAERS Safety Report 5993846-X (Version None)
Quarter: 2008Q4

REPORT INFORMATION
  Report Type: 
  Country: None (occurrence: None)
  Receive Date: 20081212
  Receipt Date: 20081024
  Transmission Date: 20090506
  Serious: No
  Sender: FDA-Public Use
  Company Number: PR-ABBOTT-08P-131-0484456-00

PATIENT
  Sex: Female
  Weight: 77.18 kg

DRUGS (8)
  1. HUMIRA [Suspect]
     Indication: RHEUMATOID ARTHRITIS
     Dates: start: 20070901, end: 20080501
  2. PREDNISONE TAB [Concomitant]
     Indication: RHEUMATOID ARTHRITIS
     Route: 048
  3. METHOTREXATE [Concomitant]
     Indication: RHEUMATOID ARTHRITIS
     Dosage: 4 - 2.5 MG TABS = 10 MG WKLY
     Route: 048
  4. FOLIC ACID [Concomitant]
     Indication: RHEUMATOID ARTHRITIS
     Route: 048
  5. CHLORPROMAZINE [Concomitant]
     Indication: DEPRESSION
     Dosage: 1 TAB PM
     Route: 048
  6. AMITRIPTYLINE HCL [Concomitant]
     Indication: DEPRESSION
     Dosage: NIGHTLY
     Route: 048
  7. LO/OVRAL [Concomitant]
     Indication: CONTRACEPTION
     Route: 048
  8. LO/OVRAL [Concomitant]
     Indication: HAEMORRHAGE

REACTIONS (2)
  - HYPERSENSITIVITY [None]
  - PRURITUS [None]
